FAERS Safety Report 19868233 (Version 2)
Quarter: 2022Q2

REPORT INFORMATION
  Report Type: Report from Study
  Country: US (occurrence: None)
  Receive Date: 20210922
  Receipt Date: 20220601
  Transmission Date: 20220721
  Serious: Yes (Hospitalization, Other)
  Sender: FDA-Public Use
  Company Number: US-MERCK HEALTHCARE KGAA-9266103

PATIENT
  Age: 61 Year
  Sex: Female

DRUGS (1)
  1. REBIF [Suspect]
     Active Substance: INTERFERON BETA-1A
     Indication: Multiple sclerosis
     Route: 058
     Dates: start: 20181101

REACTIONS (4)
  - Nephrolithiasis [Unknown]
  - Electrolyte depletion [Unknown]
  - Dysphagia [Unknown]
  - Choking [Unknown]

NARRATIVE: CASE EVENT DATE: 20210101
